FAERS Safety Report 10462694 (Version 7)
Quarter: 2014Q4

REPORT INFORMATION
  Report Type: Spontaneous
  Country: GB (occurrence: GB)
  Receive Date: 20140918
  Receipt Date: 20141121
  Transmission Date: 20150528
  Serious: Yes (Other)
  Sender: FDA-Public Use
  Company Number: GB-PFIZER INC-2014255711

PATIENT
  Age: 80 Year
  Sex: Female
  Weight: 34.9 kg

DRUGS (9)
  1. GABAPENTIN. [Suspect]
     Active Substance: GABAPENTIN
     Indication: POST HERPETIC NEURALGIA
     Dosage: UNK
     Route: 065
  2. BUTRANS [Suspect]
     Active Substance: BUPRENORPHINE
     Indication: HERPES ZOSTER
     Dosage: UNK
  3. GABAPENTIN. [Suspect]
     Active Substance: GABAPENTIN
     Indication: HERPES ZOSTER
  4. ORAMORPH SR SUSTAINED RELEASE [Suspect]
     Active Substance: MORPHINE SULFATE
     Dosage: 5 ML, 4X/DAY
     Route: 048
     Dates: start: 201407
  5. ANADIN EXTRA [Concomitant]
     Active Substance: ACETAMINOPHEN\ASPIRIN\CAFFEINE
     Indication: PAIN
     Dosage: UNK
  6. BUTRANS [Suspect]
     Active Substance: BUPRENORPHINE
     Indication: POST HERPETIC NEURALGIA
     Dosage: 5 UG, PER HOUR
     Route: 062
  7. ORAMORPH SR SUSTAINED RELEASE [Suspect]
     Active Substance: MORPHINE SULFATE
     Dosage: 10MG/5ML
     Dates: start: 201407
  8. LACTULOSE. [Concomitant]
     Active Substance: LACTULOSE
     Dosage: UNK
  9. IRON [Suspect]
     Active Substance: IRON
     Indication: ANAEMIA
     Dosage: UNK

REACTIONS (13)
  - Clumsiness [Unknown]
  - Drug dependence [Unknown]
  - Confusional state [Unknown]
  - Diverticulitis [Unknown]
  - Drug ineffective [Unknown]
  - Balance disorder [Unknown]
  - Somnolence [Unknown]
  - Arthritis [Unknown]
  - Depression [Unknown]
  - Visual impairment [Unknown]
  - Diarrhoea [Unknown]
  - Chronic lymphocytic leukaemia [Unknown]
  - Dry mouth [Unknown]

NARRATIVE: CASE EVENT DATE: 2009
